FAERS Safety Report 6252106-2 (Version None)
Quarter: 2009Q2

REPORT INFORMATION
  Report Type: 
  Country: None (occurrence: None)
  Receive Date: 20090630
  Receipt Date: 20050101
  Transmission Date: 20091009
  Serious: Yes (Hospitalization)
  Sender: FDA-Public Use
  Company Number: US-ROCHE-638997

PATIENT
  Sex: Female

DRUGS (7)
  1. ENFUVIRTIDE [Suspect]
     Route: 065
     Dates: start: 20040731, end: 20080307
  2. APTIVUS [Concomitant]
     Dates: start: 20001121, end: 20080307
  3. EPIVIR [Concomitant]
     Dates: start: 20001121, end: 20080814
  4. ZERIT [Concomitant]
     Dates: start: 20001121, end: 20080307
  5. VIREAD [Concomitant]
     Dosage: FREQUENCY REPIRTED AS QD
     Dates: start: 20031112, end: 20071015
  6. CIPRO [Concomitant]
     Dates: start: 20040101, end: 20040101
  7. AVELOX [Concomitant]
     Dosage: FREQUENCY REPIRTED AS QD
     Dates: start: 20041118, end: 20041128

REACTIONS (1)
  - MENINGITIS ASEPTIC [None]
